FAERS Safety Report 19158336 (Version 1)
Quarter: 2021Q2

REPORT INFORMATION
  Report Type: Spontaneous
  Country: US (occurrence: US)
  Receive Date: 20210420
  Receipt Date: 20210420
  Transmission Date: 20210717
  Serious: Yes (Hospitalization)
  Sender: FDA-Public Use
  Company Number: NVSC2021US080428

PATIENT
  Age: 78 Year
  Sex: Female

DRUGS (1)
  1. KYMRIAH [Suspect]
     Active Substance: TISAGENLECLEUCEL
     Indication: DIFFUSE LARGE B-CELL LYMPHOMA
     Dosage: UNK, ONCE/SINGLE
     Route: 042
     Dates: start: 20210120, end: 20210120

REACTIONS (3)
  - Oedema [Recovered/Resolved]
  - Inflammation [Unknown]
  - Swelling [Unknown]

NARRATIVE: CASE EVENT DATE: 20210123
